FAERS Safety Report 19078459 (Version 2)
Quarter: 2021Q2

REPORT INFORMATION
  Report Type: Spontaneous
  Country: US (occurrence: US)
  Receive Date: 20210331
  Receipt Date: 20210425
  Transmission Date: 20210717
  Serious: No
  Sender: FDA-Public Use
  Company Number: US-GLAXOSMITHKLINE-USCH2021016217

PATIENT
  Age: 80 Year
  Sex: Female

DRUGS (1)
  1. VOLTAREN [Suspect]
     Active Substance: DICLOFENAC SODIUM
     Indication: ARTHRITIS
     Dosage: UNK

REACTIONS (4)
  - Product use in unapproved indication [Recovering/Resolving]
  - Product administered at inappropriate site [Recovering/Resolving]
  - Drug effective for unapproved indication [Recovering/Resolving]
  - Expired product administered [Unknown]
